FAERS Safety Report 19746437 (Version 9)
Quarter: 2025Q4

REPORT INFORMATION
  Report Type: Report from Study
  Country: EU (occurrence: EU)
  Receive Date: 20210825
  Receipt Date: 20251007
  Transmission Date: 20260118
  Serious: Yes (Hospitalization, Other)
  Sender: PFIZER
  Company Number: EU-002147023-NVSC2020DE158398

PATIENT
  Age: 67 Year
  Sex: Female
  Weight: 81.9 kg

DRUGS (10)
  1. IBRANCE [Suspect]
     Active Substance: PALBOCICLIB
     Indication: Breast cancer metastatic
     Dosage: 125 MG, CYCLIC, (QD, 21 DAYS INTAKE, THAN 7 DAYS PAUSE)
     Route: 048
     Dates: start: 20200817, end: 20210511
  2. IBRANCE [Suspect]
     Active Substance: PALBOCICLIB
     Dosage: 100 MG, CYCLIC, (QD, 21 DAYS INTAKE, THAN 7 DAYS PAUSE)
     Route: 048
     Dates: start: 20210512, end: 20210719
  3. IBRANCE [Suspect]
     Active Substance: PALBOCICLIB
     Dosage: 100 MG, CYCLIC (QD, 21 DAYS INTAKE, THAN 7 DAYS PAUSE)
     Route: 048
     Dates: start: 20210823
  4. FULVESTRANT [Suspect]
     Active Substance: FULVESTRANT
     Indication: Breast cancer metastatic
     Dosage: 500 MG, MONTHLY (EVERY 4 WEEKS)
     Route: 030
     Dates: start: 20200310, end: 20200816
  5. FULVESTRANT [Suspect]
     Active Substance: FULVESTRANT
     Indication: Breast cancer metastatic
     Dosage: 500 MG, Q4W
     Route: 030
     Dates: start: 20200310, end: 20200816
  6. KISQALI [Suspect]
     Active Substance: RIBOCICLIB SUCCINATE
     Indication: Breast cancer metastatic
     Dosage: 400 MG, CYCLIC (QD, SCHEMA 21 DAYS INTAKE, 7 DAYS PAUSE)
     Route: 048
     Dates: start: 20200311, end: 20200601
  7. KISQALI [Suspect]
     Active Substance: RIBOCICLIB SUCCINATE
     Dosage: 200 MG, CYCLIC (QD, SCHEMA 21 DAYS INTAKE, 7 DAYS PAUSE)
     Route: 048
     Dates: start: 20200701, end: 20200723
  8. PALBOCICLIB [Concomitant]
     Active Substance: PALBOCICLIB
     Indication: Breast cancer metastatic
     Dosage: 125 MG, Q3W (DAILY DOSE) (21 DAYS INTAKE, THAN 7 DAYS PAUSE)
     Route: 048
     Dates: start: 20200817
  9. PALBOCICLIB [Concomitant]
     Active Substance: PALBOCICLIB
     Dosage: 100 MG
     Route: 065
     Dates: start: 20210330
  10. PALBOCICLIB [Concomitant]
     Active Substance: PALBOCICLIB
     Dosage: 100 MG
     Route: 065
     Dates: start: 20210406

REACTIONS (5)
  - Pancytopenia [Recovering/Resolving]
  - Transferrin decreased [Recovering/Resolving]
  - Haemoglobin decreased [Recovering/Resolving]
  - Hepatotoxicity [Recovering/Resolving]
  - Dermatitis allergic [Unknown]

NARRATIVE: CASE EVENT DATE: 20200602
